FAERS Safety Report 25884331 (Version 3)
Quarter: 2025Q4

REPORT INFORMATION
  Report Type: Report from Study
  Country: CA (occurrence: CA)
  Receive Date: 20251006
  Receipt Date: 20251127
  Transmission Date: 20260117
  Serious: Yes (Hospitalization, Other)
  Sender: TAKEDA
  Company Number: CA-TAKEDA-2025TUS077455

PATIENT
  Age: 75 Year
  Sex: Female

DRUGS (2)
  1. VEDOLIZUMAB [Suspect]
     Active Substance: VEDOLIZUMAB
     Indication: Crohn^s disease
     Dosage: 300 MILLIGRAM
  2. Salofalk [Concomitant]
     Dosage: 4 GRAM

REACTIONS (2)
  - Crohn^s disease [Unknown]
  - Clostridium difficile infection [Recovered/Resolved]

NARRATIVE: CASE EVENT DATE: 20250929
